FAERS Safety Report 21289511 (Version 1)
Quarter: 2022Q3

REPORT INFORMATION
  Report Type: Spontaneous
  Country: US (occurrence: US)
  Receive Date: 20220902
  Receipt Date: 20220902
  Transmission Date: 20221027
  Serious: No
  Sender: FDA-Public Use
  Company Number: US-BRISTOL-MYERS SQUIBB COMPANY-2022-099767

PATIENT
  Age: 82 Year
  Sex: Female
  Weight: 69.4 kg

DRUGS (1)
  1. REVLIMID [Suspect]
     Active Substance: LENALIDOMIDE
     Indication: Plasma cell myeloma
     Dosage: ONE CAPSULE EVERY OTHER DAY D 1-14 Q 21 DAYS
     Route: 048
     Dates: start: 20210311

REACTIONS (2)
  - Anaemia [Unknown]
  - Intentional product misuse [Unknown]
